FAERS Safety Report 5243445-2 (Version None)
Quarter: 2007Q1

REPORT INFORMATION
  Report Type: 
  Country: None (occurrence: None)
  Receive Date: 20070215
  Receipt Date: 20070129
  Transmission Date: 20070707
  Serious: Yes (Hospitalization)
  Sender: FDA-Public Use
  Company Number: 8021833

PATIENT
  Age: 45 Year
  Sex: Female

DRUGS (2)
  1. KEPPRA [Suspect]
     Indication: CONVULSION
     Dosage: NI PO
     Route: 048
     Dates: start: 20061016, end: 20061113
  2. DIHYDANTOIN [Suspect]
     Indication: CONVULSION
     Dosage: NI PO
     Route: 048
     Dates: start: 20061016, end: 20061110

REACTIONS (16)
  - AGRANULOCYTOSIS [None]
  - ANAEMIA [None]
  - ASPARTATE AMINOTRANSFERASE INCREASED [None]
  - B-CELL SMALL LYMPHOCYTIC LYMPHOMA [None]
  - BLOOD IRON INCREASED [None]
  - BONE MARROW TOXICITY [None]
  - CELL DEATH [None]
  - EPISTAXIS [None]
  - EPSTEIN-BARR VIRUS TEST POSITIVE [None]
  - GAMMA-GLUTAMYLTRANSFERASE INCREASED [None]
  - GINGIVAL BLEEDING [None]
  - HYPOCOAGULABLE STATE [None]
  - INFECTION [None]
  - PANCYTOPENIA [None]
  - SERUM FERRITIN INCREASED [None]
  - THROMBOCYTOPENIA [None]
